FAERS Safety Report 8382018-X (Version None)
Quarter: 2012Q2

REPORT INFORMATION
  Report Type: 
  Country: None (occurrence: None)
  Receive Date: 20120522
  Receipt Date: 20120522
  Transmission Date: 20120825
  Serious: Yes (Other)
  Sender: FDA-Public Use
  Company Number: None

PATIENT
  Age: 30 Year
  Sex: Male
  Weight: 88.905 kg

DRUGS (1)
  1. LEVAQUIN [Suspect]
     Indication: PHARYNGITIS STREPTOCOCCAL
     Dosage: 500MG 1X DAILY PO
     Route: 048
     Dates: start: 20120424, end: 20120426

REACTIONS (4)
  - TENDONITIS [None]
  - ARTHRALGIA [None]
  - TINNITUS [None]
  - IRRITABILITY [None]
